FAERS Safety Report 11826438 (Version 1)
Quarter: 2015Q4

REPORT INFORMATION
  Report Type: Spontaneous
  Country: US (occurrence: None)
  Receive Date: 20151210
  Receipt Date: 20151210
  Transmission Date: 20160305
  Serious: No
  Sender: FDA-Public Use
  Company Number: None

PATIENT
  Age: 63 Year
  Sex: Female
  Weight: 79.38 kg

DRUGS (7)
  1. CEFDINIR 300 MG CITRON PHARMACUEITCALS [Suspect]
     Active Substance: CEFDINIR
     Indication: PHARYNGITIS
     Route: 048
  2. CENTRUM WOMEN^S SILVER MULTIVITAMINS [Concomitant]
  3. IBUPROFEN. [Concomitant]
     Active Substance: IBUPROFEN
  4. CALCIUM PLUS D [Concomitant]
     Active Substance: CALCIUM\VITAMIN D
  5. NAPROXEN. [Concomitant]
     Active Substance: NAPROXEN
  6. ATORVASTATIN [Concomitant]
     Active Substance: ATORVASTATIN
  7. CEFDINIR 300 MG CITRON PHARMACUEITCALS [Suspect]
     Active Substance: CEFDINIR
     Indication: LARYNGITIS
     Route: 048

REACTIONS (2)
  - Myalgia [None]
  - Inappropriate schedule of drug administration [None]

NARRATIVE: CASE EVENT DATE: 20151208
